FAERS Safety Report 24980649 (Version 1)
Quarter: 2025Q1

REPORT INFORMATION
  Report Type: Spontaneous
  Country: ES (occurrence: ES)
  Receive Date: 20250218
  Receipt Date: 20250218
  Transmission Date: 20250409
  Serious: Yes (Other)
  Sender: SANOFI AVENTIS
  Company Number: ES-GT-20242045

PATIENT
  Age: 36 Year
  Sex: Female
  Weight: 83.3 kg

DRUGS (21)
  1. AMITRIPTYLINE HYDROCHLORIDE [Interacting]
     Active Substance: AMITRIPTYLINE HYDROCHLORIDE
     Dosage: 25 MG, QD (24 TABS )
     Route: 048
  2. AMITRIPTYLINE HYDROCHLORIDE [Interacting]
     Active Substance: AMITRIPTYLINE HYDROCHLORIDE
     Dosage: 25 MG, HS
  3. PREGABALIN [Interacting]
     Active Substance: PREGABALIN
     Dosage: 2 DF, BID (24 TABLETS) (STRENGTH: 75 MG)
     Route: 048
  4. ZOLPIDEM TARTRATE [Interacting]
     Active Substance: ZOLPIDEM TARTRATE
     Dosage: 1 DF, QD  (STRENGTH: 10 MG)
     Route: 048
  5. HYDROMORPHONE [Interacting]
     Active Substance: HYDROMORPHONE
     Dosage: 16 MG, HS (2 AT MIDDAY)
  6. EBASTINE [Interacting]
     Active Substance: EBASTINE
     Dosage: 1 DF, QD
     Route: 048
  7. FENTANYL [Interacting]
     Active Substance: FENTANYL
     Dosage: 1 DF, QD
     Route: 060
  8. FENTANYL [Interacting]
     Active Substance: FENTANYL
     Dosage: 1 DF, QD (30 TABS TO SUCK) (MATRIX)
     Route: 048
  9. BECLOMETHASONE\FORMOTEROL [Interacting]
     Active Substance: BECLOMETHASONE\FORMOTEROL
     Dosage: 1 DF, Q12H (STRENGTH: 100/6  UG)
     Route: 055
  10. TERBUTALINE [Interacting]
     Active Substance: TERBUTALINE
     Dosage: 1 DF, QD
     Route: 055
  11. OMEPRAZOLE [Concomitant]
     Active Substance: OMEPRAZOLE
     Dosage: 1 DF, QD
     Route: 048
  12. LEVOTHYROXINE [Concomitant]
     Active Substance: LEVOTHYROXINE
     Dosage: 1 DF, QD
     Route: 048
  13. LEVOTHYROXINE [Concomitant]
     Active Substance: LEVOTHYROXINE
     Dosage: 75 UG, AC
  14. TOPIRAMATE [Concomitant]
     Active Substance: TOPIRAMATE
     Dosage: 1 DF, QD
     Route: 048
  15. THIAMINE [Concomitant]
     Active Substance: THIAMINE
     Dosage: 1 DF, QW  (MORNING)
     Route: 048
  16. CYANOCOBALAMIN [Concomitant]
     Active Substance: CYANOCOBALAMIN
     Dosage: 1 DF, 1 VIAL/0 DAYS
  17. CALCIFEDIOL [Concomitant]
     Active Substance: CALCIFEDIOL
     Route: 048
  18. FLUTICASONE [Concomitant]
     Active Substance: FLUTICASONE
     Dosage: 1 DF, QD (2 SPRAYS EVERY 24 HOURS)
     Route: 065
  19. EPINEPHRINE [Concomitant]
     Active Substance: EPINEPHRINE
  20. ACETAMINOPHEN [Concomitant]
     Active Substance: ACETAMINOPHEN
     Dosage: 1 DF, Q12H
     Route: 048
  21. ELETRIPTAN [Concomitant]
     Active Substance: ELETRIPTAN
     Dosage: 1 DF, QD
     Route: 048

REACTIONS (14)
  - Cardiotoxicity [Unknown]
  - Cognitive disorder [Recovering/Resolving]
  - Drug interaction [Recovered/Resolved]
  - Irritability [Recovering/Resolving]
  - Depressed mood [Recovering/Resolving]
  - Aggression [Recovering/Resolving]
  - Social problem [Recovering/Resolving]
  - Motor dysfunction [Recovered/Resolved]
  - Fatigue [Recovered/Resolved]
  - Pain [Recovered/Resolved]
  - Decreased activity [Recovered/Resolved]
  - Sedation complication [Recovered/Resolved]
  - Somnolence [Recovered/Resolved]
  - Treatment noncompliance [Recovered/Resolved]
